FAERS Safety Report 5960196-7 (Version None)
Quarter: 2008Q4

REPORT INFORMATION
  Report Type: 
  Country: None (occurrence: None)
  Receive Date: 20081110
  Receipt Date: 20080916
  Transmission Date: 20090506
  Serious: No
  Sender: FDA-Public Use
  Company Number: 2008US002330

PATIENT
  Age: 75 Year
  Sex: Female
  Weight: 74.8 kg

DRUGS (8)
  1. LEXISCAN [Suspect]
     Indication: SCAN MYOCARDIAL PERFUSION
     Dosage: 5 ML, OTHER, IV NOS
     Route: 042
     Dates: start: 20080808, end: 20080808
  2. PROTONIX [Concomitant]
  3. NIASPAN ER (NICOTINIC ACID) [Concomitant]
  4. TRICOR [Concomitant]
  5. ZOCOR [Concomitant]
  6. HYZAAR [Concomitant]
  7. ASPIRIN [Concomitant]
  8. AMLODIPINE [Concomitant]

REACTIONS (1)
  - PAIN IN EXTREMITY [None]
